FAERS Safety Report 4374931-5 (Version None)
Quarter: 2004Q2

REPORT INFORMATION
  Report Type: 
  Country: None (occurrence: None)
  Receive Date: 20040604
  Receipt Date: 20040520
  Transmission Date: 20050107
  Serious: Yes (Other)
  Sender: FDA-Public Use
  Company Number: 8038

PATIENT
  Age: 50 Year
  Sex: Female

DRUGS (9)
  1. METHOTREXATE [Suspect]
     Indication: PSORIATIC ARTHROPATHY
     Dates: start: 19991025, end: 20010701
  2. METHOTREXATE [Suspect]
     Indication: PSORIATIC ARTHROPATHY
     Dosage: 15 MG WEEKLY
     Dates: start: 20010702, end: 20011101
  3. METHOTREXATE [Suspect]
     Indication: PSORIATIC ARTHROPATHY
     Dosage: 10 MG WEEKLY
     Dates: start: 20011101, end: 20020114
  4. METHOTREXATE [Suspect]
     Indication: PSORIATIC ARTHROPATHY
     Dosage: 5 MG WEEKLY
     Dates: start: 20020115, end: 20020205
  5. ENBREL [Suspect]
     Indication: PSORIATIC ARTHROPATHY
     Dosage: 25 MG 2/WK SC
     Route: 058
     Dates: start: 20010619
  6. COD-LIVER OIL [Concomitant]
  7. CALCICHEW [Concomitant]
  8. PREDNISOLONE [Concomitant]
  9. CYCLOSPORINE [Concomitant]

REACTIONS (3)
  - ANTINUCLEAR ANTIBODY POSITIVE [None]
  - PLATELET COUNT DECREASED [None]
  - WHITE BLOOD CELL COUNT DECREASED [None]
